FAERS Safety Report 7291023-6 (Version None)
Quarter: 2011Q1

REPORT INFORMATION
  Report Type: 
  Country: None (occurrence: None)
  Receive Date: 20110214
  Receipt Date: 20110209
  Transmission Date: 20110831
  Serious: Yes (Death, Hospitalization, Other)
  Sender: FDA-Public Use
  Company Number: PHHY2011GB10261

PATIENT
  Age: 86 Year
  Sex: Male
  Weight: 83 kg

DRUGS (9)
  1. SINEMET [Interacting]
     Indication: PARKINSON'S DISEASE
     Dosage: 62.5 MG, BID
     Dates: start: 20090101, end: 20090212
  2. ASPIRIN [Concomitant]
     Dosage: 75 MG, QD
  3. TRAMADOL [Suspect]
     Indication: BACK PAIN
     Dosage: 50 MG, UNK
     Route: 048
     Dates: start: 20090209, end: 20090211
  4. FOSAMAX [Concomitant]
     Indication: OSTEOPOROSIS
     Dosage: 70 MG, QW
  5. PREGABALIN [Concomitant]
     Dosage: 25 MG, UNK
  6. SINEMET [Interacting]
     Dosage: UNK
  7. SINEMET [Interacting]
     Dosage: UNK
  8. MELOXICAM [Concomitant]
     Indication: ARTHRALGIA
     Dosage: 50 MG, QD
  9. LANSOPRAZOLE [Concomitant]
     Dosage: 15 MG, QD

REACTIONS (37)
  - ACUTE MYOCARDIAL INFARCTION [None]
  - SOMNOLENCE [None]
  - UNRESPONSIVE TO STIMULI [None]
  - RESPIRATION ABNORMAL [None]
  - MENINGITIS [None]
  - NECK PAIN [None]
  - AGITATION [None]
  - HERPES ZOSTER [None]
  - MUSCULOSKELETAL STIFFNESS [None]
  - CHRONIC OBSTRUCTIVE PULMONARY DISEASE [None]
  - SLEEP DISORDER [None]
  - CEREBRAL INFARCTION [None]
  - DEPRESSED LEVEL OF CONSCIOUSNESS [None]
  - SEPSIS [None]
  - CONSTIPATION [None]
  - PUPIL FIXED [None]
  - RESTLESSNESS [None]
  - GENERAL PHYSICAL HEALTH DETERIORATION [None]
  - OXYGEN SATURATION DECREASED [None]
  - SUBARACHNOID HAEMORRHAGE [None]
  - CONFUSIONAL STATE [None]
  - CEREBRAL HAEMORRHAGE [None]
  - DRUG INTERACTION [None]
  - OEDEMA PERIPHERAL [None]
  - PNEUMONIA [None]
  - BODY TEMPERATURE INCREASED [None]
  - RASH [None]
  - PULSE ABNORMAL [None]
  - BLOOD PRESSURE IMMEASURABLE [None]
  - PULMONARY EMBOLISM [None]
  - COMA SCALE ABNORMAL [None]
  - BLOOD PRESSURE INCREASED [None]
  - HAEMORRHAGE [None]
  - CIRCULATORY COLLAPSE [None]
  - MYDRIASIS [None]
  - DYSPNOEA [None]
  - HEADACHE [None]
